FAERS Safety Report 17664140 (Version 3)
Quarter: 2020Q2

REPORT INFORMATION
  Report Type: Spontaneous
  Country: DE (occurrence: DE)
  Receive Date: 20200414
  Receipt Date: 20200604
  Transmission Date: 20200713
  Serious: Yes (Other)
  Sender: FDA-Public Use
  Company Number: DE-BAXTER-2020BAX007653

PATIENT
  Age: 49 Year
  Sex: Male

DRUGS (2)
  1. UROMITEXAN 400 MG [Suspect]
     Active Substance: MESNA
     Indication: PROPHYLAXIS
     Route: 065
  2. HOLOXAN [Suspect]
     Active Substance: IFOSFAMIDE
     Indication: EWING^S SARCOMA
     Dosage: HIGH DOSE, APPROXIMATELY 30 YEARS AGO, RECEIVED FOR OVER 1 YEAR
     Route: 065

REACTIONS (13)
  - Altered state of consciousness [Unknown]
  - Amnesia [Unknown]
  - Infection susceptibility increased [Unknown]
  - Muscle spasms [Unknown]
  - Nervous system disorder [Unknown]
  - Renal disorder [Unknown]
  - Cognitive disorder [Unknown]
  - Confusional state [Unknown]
  - Neurological symptom [Unknown]
  - Disorientation [Unknown]
  - Asthenia [Not Recovered/Not Resolved]
  - Fatigue [Unknown]
  - Headache [Not Recovered/Not Resolved]
